FAERS Safety Report 15112322 (Version 1)
Quarter: 2018Q3

REPORT INFORMATION
  Report Type: Spontaneous
  Country: US (occurrence: US)
  Receive Date: 20180705
  Receipt Date: 20180705
  Transmission Date: 20181010
  Serious: No
  Sender: FDA-Public Use
  Company Number: US-AMAG PHARMACEUTICALS, INC.-AMAG201802040

PATIENT

DRUGS (4)
  1. FERRLECIT [Concomitant]
     Active Substance: SODIUM FERRIC GLUCONATE COMPLEX
     Indication: PRODUCT USED FOR UNKNOWN INDICATION
     Dosage: UNK
     Route: 065
  2. STELARA [Concomitant]
     Active Substance: USTEKINUMAB
     Indication: SKIN DISORDER
     Dosage: UNK
     Route: 065
  3. FERAHEME [Suspect]
     Active Substance: FERUMOXYTOL NON-STOICHIOMETRIC MAGNETITE
     Indication: IRON DEFICIENCY
     Dosage: 510 MG, UNK
     Route: 041
     Dates: start: 20180420, end: 20180420
  4. METHOTREXATE. [Concomitant]
     Active Substance: METHOTREXATE
     Indication: SKIN DISORDER
     Dosage: UNK
     Route: 048

REACTIONS (2)
  - Back pain [Unknown]
  - Chest pain [Unknown]

NARRATIVE: CASE EVENT DATE: 20180420
